FAERS Safety Report 6460821-0 (Version None)
Quarter: 2009Q4

REPORT INFORMATION
  Report Type: 
  Country: None (occurrence: None)
  Receive Date: 20091130
  Receipt Date: 20091124
  Transmission Date: 20100525
  Serious: Yes (Hospitalization)
  Sender: FDA-Public Use
  Company Number: GB-AMGEN-UK286834

PATIENT
  Sex: Male

DRUGS (12)
  1. PANITUMUMAB [Suspect]
     Indication: SQUAMOUS CELL CARCINOMA
     Route: 041
     Dates: start: 20080604
  2. FLUOROURACIL [Suspect]
     Route: 041
     Dates: start: 20080604
  3. CISPLATIN [Suspect]
     Route: 041
     Dates: start: 20080604
  4. UNSPECIFIED ANTIHYPERTENSIVE AGENT [Concomitant]
  5. AMLODIPINE [Concomitant]
  6. CANDESARTAN CILEXETIL [Concomitant]
  7. DICLOFENAC [Concomitant]
  8. DEXAMETHASONE TAB [Concomitant]
  9. CO-CODAMOL [Concomitant]
  10. ZOPICLONE [Concomitant]
  11. VENTOLIN [Concomitant]
  12. LANSOPRAZOLE [Concomitant]

REACTIONS (7)
  - CLOSTRIDIUM DIFFICILE COLITIS [None]
  - DEHYDRATION [None]
  - HYPOTENSION [None]
  - LOWER RESPIRATORY TRACT INFECTION [None]
  - PULMONARY OEDEMA [None]
  - RASH [None]
  - SINUS ARRHYTHMIA [None]
